FAERS Safety Report 8874185 (Version 2)
Quarter: 2012Q4

REPORT INFORMATION
  Report Type: 
  Country: JP (occurrence: JP)
  Receive Date: 20121023
  Receipt Date: 20121207
  Transmission Date: 20130627
  Serious: Yes (Death, Life-Threatening, Disabling)
  Sender: FDA-Public Use
  Company Number: JP-ROCHE-1098696

PATIENT
  Age: 73 Year
  Sex: Male
  Weight: 51 kg

DRUGS (13)
  1. AVASTIN [Suspect]
     Indication: LUNG ADENOCARCINOMA METASTATIC
     Route: 041
     Dates: start: 20120622, end: 20120622
  2. AVASTIN [Suspect]
     Indication: LUNG ADENOCARCINOMA METASTATIC
     Route: 041
     Dates: start: 20120723, end: 20120723
  3. OXYCONTIN [Suspect]
     Indication: PAIN
     Route: 048
     Dates: start: 20120604, end: 2012
  4. CARBOPLATIN [Concomitant]
     Indication: LUNG ADENOCARCINOMA METASTATIC
     Route: 041
     Dates: start: 20120622, end: 20120622
  5. CARBOPLATIN [Concomitant]
     Indication: LUNG ADENOCARCINOMA METASTATIC
     Route: 041
     Dates: start: 20120723, end: 20120723
  6. PACLITAXEL [Concomitant]
     Indication: LUNG ADENOCARCINOMA METASTATIC
     Route: 041
     Dates: start: 20120622, end: 20120622
  7. PACLITAXEL [Concomitant]
     Indication: LUNG ADENOCARCINOMA METASTATIC
     Route: 041
     Dates: start: 20120723, end: 20120723
  8. DIOVAN [Concomitant]
     Indication: HYPERTENSION
     Route: 048
     Dates: start: 20120604, end: 2012
  9. ADALAT CR [Concomitant]
     Indication: HYPERTENSION
     Route: 048
     Dates: start: 20120604, end: 2012
  10. GASTER [Concomitant]
     Indication: PROPHYLAXIS
     Route: 048
     Dates: start: 20120604, end: 2012
  11. LOXONIN [Concomitant]
     Indication: PAIN
     Route: 048
     Dates: start: 20120604, end: 2012
  12. CALONAL [Concomitant]
     Indication: PAIN
     Route: 048
     Dates: start: 20120604, end: 2012
  13. LYRICA [Concomitant]
     Indication: PAIN
     Route: 048
     Dates: start: 20120604, end: 2012

REACTIONS (5)
  - Disseminated intravascular coagulation [Fatal]
  - Pulmonary haemorrhage [Fatal]
  - Large intestine perforation [Recovered/Resolved with Sequelae]
  - Peritonitis [Recovered/Resolved]
  - Constipation [Not Recovered/Not Resolved]
